FAERS Safety Report 5900402-8 (Version None)
Quarter: 2008Q3

REPORT INFORMATION
  Report Type: 
  Country: None (occurrence: None)
  Receive Date: 20080926
  Receipt Date: 20080915
  Transmission Date: 20090109
  Serious: Yes (Other)
  Sender: FDA-Public Use
  Company Number: FR-ELI_LILLY_AND_COMPANY-FR200806001139

PATIENT
  Age: 75 Year
  Sex: Female
  Weight: 68 kg

DRUGS (7)
  1. CYMBALTA [Suspect]
     Indication: DEPRESSION
     Dosage: 60 MG, DAILY (1/D)
     Route: 048
     Dates: start: 20080522, end: 20080501
  2. CYMBALTA [Suspect]
     Dosage: 60 MG, DAILY (1/D)
     Route: 048
     Dates: start: 20080529, end: 20080529
  3. LOXEN [Concomitant]
     Indication: HYPERTENSION
     Dosage: 50 UNK, 2/D
     Route: 048
  4. XANAX [Concomitant]
     Indication: ANXIETY
     Dosage: 925 UNK, 3/D
     Route: 048
     Dates: start: 20080301
  5. DOLIPRANE [Concomitant]
     Indication: PAIN
     Dosage: 500 UNK, 6 UNK
     Route: 048
     Dates: start: 20080301
  6. DAFLON [Concomitant]
     Indication: VENOUS INSUFFICIENCY
     Dosage: 2 UNK, OTHER
     Route: 048
  7. NEXIUM [Concomitant]
     Indication: GASTRIC DISORDER
     Dosage: UNK, UNKNOWN
     Route: 048
     Dates: start: 20080301

REACTIONS (6)
  - DIZZINESS POSTURAL [None]
  - HYPERHIDROSIS [None]
  - NAUSEA [None]
  - PALLOR [None]
  - PRESYNCOPE [None]
  - VERTIGO [None]
